FAERS Safety Report 5237030-6 (Version None)
Quarter: 2007Q1

REPORT INFORMATION
  Report Type: 
  Country: None (occurrence: None)
  Receive Date: 20070213
  Receipt Date: 20070201
  Transmission Date: 20070707
  Serious: Yes (Disabling)
  Sender: FDA-Public Use
  Company Number: PHFR2007GB00689

PATIENT
  Sex: Female

DRUGS (1)
  1. STALEVO 100 [Suspect]
     Indication: PARKINSON'S DISEASE
     Dosage: 50 MG, TID

REACTIONS (4)
  - HYPOKINESIA [None]
  - MUSCULOSKELETAL STIFFNESS [None]
  - PARALYSIS [None]
  - PARKINSON'S DISEASE [None]
